FAERS Safety Report 24032933 (Version 6)
Quarter: 2025Q1

REPORT INFORMATION
  Report Type: Spontaneous
  Country: CA (occurrence: CA)
  Receive Date: 20240701
  Receipt Date: 20250304
  Transmission Date: 20250409
  Serious: Yes (Hospitalization)
  Sender: INTERCEPT PHARMACEUTICALS
  Company Number: CA-ADVANZ PHARMA-202405004034

PATIENT
  Age: 79 Year
  Sex: Female

DRUGS (15)
  1. OCALIVA [Suspect]
     Active Substance: OBETICHOLIC ACID
     Indication: Primary biliary cholangitis
     Route: 048
     Dates: start: 20240504, end: 20250212
  2. URSODIOL [Concomitant]
     Active Substance: URSODIOL
  3. ASPIRIN [Concomitant]
     Active Substance: ASPIRIN
  4. ASPIRIN [Concomitant]
     Active Substance: ASPIRIN
  5. ASPIRIN [Concomitant]
     Active Substance: ASPIRIN
  6. ASPIRIN [Concomitant]
     Active Substance: ASPIRIN
  7. ASPIRIN [Concomitant]
     Active Substance: ASPIRIN
  8. METOPROLOL [Concomitant]
     Active Substance: METOPROLOL
  9. METOPROLOL [Concomitant]
     Active Substance: METOPROLOL
  10. METOPROLOL [Concomitant]
     Active Substance: METOPROLOL
  11. METOPROLOL [Concomitant]
     Active Substance: METOPROLOL
  12. METOPROLOL [Concomitant]
     Active Substance: METOPROLOL
  13. CHOLESTEROL [Concomitant]
     Active Substance: CHOLESTEROL
     Indication: Blood cholesterol
  14. CHOLESTEROL [Concomitant]
     Active Substance: CHOLESTEROL
  15. CHOLESTEROL [Concomitant]
     Active Substance: CHOLESTEROL

REACTIONS (8)
  - Infection [Unknown]
  - Arthritis [Not Recovered/Not Resolved]
  - Malaise [Unknown]
  - Macule [Not Recovered/Not Resolved]
  - Condition aggravated [Unknown]
  - Pruritus [Not Recovered/Not Resolved]
  - Product dose omission issue [Unknown]
  - Therapy cessation [Unknown]

NARRATIVE: CASE EVENT DATE: 20240501
